FAERS Safety Report 6887747-2 (Version None)
Quarter: 2010Q3

REPORT INFORMATION
  Report Type: 
  Country: None (occurrence: None)
  Receive Date: 20100730
  Receipt Date: 20100721
  Transmission Date: 20110219
  Serious: Yes (Death, Hospitalization, Other)
  Sender: FDA-Public Use
  Company Number: NL-ROCHE-716071

PATIENT
  Sex: Female

DRUGS (7)
  1. XELODA [Suspect]
     Dosage: DOSE: 1500 MG TWICE A DAY FOR TWO WEEKS FOLLOWED BY ONE WEEK STOP IN THE FIRST CYCLE
     Route: 048
     Dates: start: 20100331
  2. XELODA [Suspect]
     Dosage: SECOND CYCLE, FREQUENCY: TWICE A DAY FOR TWO WEEKS, FOLLOWED BYONE WEEK STOP.
     Route: 048
     Dates: start: 20100421
  3. OXALIPLATIN [Suspect]
     Dosage: DOSE: 220 MG EVERY THREE WEEKS AT THE FIRST DAY OF THE CYCLE.
     Route: 042
     Dates: start: 20100331
  4. OXALIPLATIN [Suspect]
     Route: 042
     Dates: start: 20100421
  5. ZOFRAN [Concomitant]
     Dosage: ANTI EMETRICS
  6. DEXAMETHASONE TAB [Concomitant]
     Dosage: ANTI EMETRICS
  7. PARACETAMOL [Concomitant]
     Dosage: PRESCRIBED AS NEEDED
     Route: 048

REACTIONS (8)
  - C-REACTIVE PROTEIN INCREASED [None]
  - CARDIAC ARREST [None]
  - DEHYDRATION [None]
  - DIARRHOEA [None]
  - FEBRILE NEUTROPENIA [None]
  - INTESTINAL OBSTRUCTION [None]
  - SEPSIS [None]
  - SPUTUM ABNORMAL [None]
